FAERS Safety Report 7900205-9 (Version None)
Quarter: 2011Q4

REPORT INFORMATION
  Report Type: 
  Country: None (occurrence: None)
  Receive Date: 20111101
  Receipt Date: 20110426
  Transmission Date: 20120403
  Serious: Yes (Other)
  Sender: FDA-Public Use
  Company Number: 275194USA

PATIENT
  Age: 55 Year
  Sex: 0

DRUGS (6)
  1. ESOMEPRAZOLE MAGNESIUM [Concomitant]
  2. PHENYTOIN [Concomitant]
  3. CLONAZEPAM [Suspect]
     Indication: PANIC DISORDER
  4. CLONAZEPAM [Suspect]
     Indication: CONVULSION
  5. PHENOBARBITAL TAB [Concomitant]
  6. PROCATEROL HCL [Concomitant]

REACTIONS (6)
  - ANXIETY [None]
  - DRUG INEFFECTIVE [None]
  - HEART RATE INCREASED [None]
  - RESTLESSNESS [None]
  - CONVULSION [None]
  - FATIGUE [None]
